FAERS Safety Report 23663153 (Version 1)
Quarter: 2024Q1

REPORT INFORMATION
  Report Type: Spontaneous
  Country: NL (occurrence: NL)
  Receive Date: 20240322
  Receipt Date: 20240322
  Transmission Date: 20240410
  Serious: Yes (Death, Life-Threatening, Hospitalization, Other)
  Sender: FDA-Public Use
  Company Number: NL-NOVPHSZ-PHHY2017NL190982

PATIENT
  Age: 73 Year
  Sex: Male

DRUGS (19)
  1. FLUCLOXACILLIN [Suspect]
     Active Substance: FLUCLOXACILLIN
     Indication: Antibiotic therapy
     Dosage: 6 G, QD
     Route: 042
  2. ACETAMINOPHEN [Suspect]
     Active Substance: ACETAMINOPHEN
     Indication: Pain
     Dosage: 1 G, TID
     Route: 042
  3. ACETAMINOPHEN [Suspect]
     Active Substance: ACETAMINOPHEN
     Dosage: 1 G, TID
     Route: 054
  4. ALFACALCIDOL [Concomitant]
     Active Substance: ALFACALCIDOL
     Dosage: DAILY DOSE: 0.25 ?G MICROGRAM(S) EVERY DAY
     Route: 065
  5. ALFACALCIDOL [Concomitant]
     Active Substance: ALFACALCIDOL
     Indication: Product used for unknown indication
     Dosage: .25 PG,QD
     Route: 065
  6. BENEFIX [Concomitant]
     Active Substance: COAGULATION FACTOR IX RECOMBINANT HUMAN\ISOPROPYL ALCOHOL
     Dosage: 6000 IU,QD
     Route: 065
  7. BENEFIX [Concomitant]
     Active Substance: COAGULATION FACTOR IX RECOMBINANT HUMAN\ISOPROPYL ALCOHOL
     Indication: Product used for unknown indication
     Dosage: DOSE DESCRIPTION : 6000 IU,QD
     Route: 065
  8. CYKLOKAPRON [Concomitant]
     Active Substance: TRANEXAMIC ACID
     Dosage: 1000 MG,TID
     Route: 065
  9. CYKLOKAPRON [Concomitant]
     Active Substance: TRANEXAMIC ACID
     Indication: Product used for unknown indication
     Dosage: DAILY DOSE: 3000 MG MILLIGRAM(S) EVERY DAY
     Route: 065
  10. HALOPERIDOL [Concomitant]
     Active Substance: HALOPERIDOL
     Indication: Product used for unknown indication
     Dosage: UNK UNK,BID
     Route: 065
  11. HALOPERIDOL [Concomitant]
     Active Substance: HALOPERIDOL
     Indication: Product used for unknown indication
     Dosage: HALDOL DROPLETS BID
     Route: 065
  12. INSULIN NOS [Concomitant]
     Active Substance: INSULIN NOS
     Indication: Type 2 diabetes mellitus
     Dosage: DOSED BASED ON GLUCOSE LEVELS
     Route: 065
  13. INSULIN NOS [Concomitant]
     Active Substance: INSULIN NOS
     Dosage: DOSED BASED ON GLUCOSE LEVELS
     Route: 065
  14. MELATONIN [Concomitant]
     Active Substance: MELATONIN
     Dosage: 3 MG,QD
     Route: 065
  15. MELATONIN [Concomitant]
     Active Substance: MELATONIN
     Indication: Product used for unknown indication
     Dosage: DAILY DOSE: 3 MG MILLIGRAM(S) EVERY DAY
     Route: 065
  16. THIAMINE [Concomitant]
     Active Substance: THIAMINE
     Dosage: 100 MG,QD
     Route: 065
  17. THIAMINE [Concomitant]
     Active Substance: THIAMINE
     Indication: Product used for unknown indication
     Dosage: DOSE DESCRIPTION : 100 MG,QD
     Route: 065
  18. TOLBUTAMIDE [Concomitant]
     Active Substance: TOLBUTAMIDE
     Indication: Product used for unknown indication
     Dosage: 500 MG,BID
     Route: 065
  19. TOLBUTAMIDE [Concomitant]
     Active Substance: TOLBUTAMIDE
     Dosage: DOSE DESCRIPTION : 500 MG,BID
     Route: 065

REACTIONS (12)
  - Cardiopulmonary failure [Fatal]
  - Drug interaction [Recovered/Resolved]
  - Metabolic acidosis [Recovered/Resolved]
  - PCO2 decreased [Recovered/Resolved]
  - Confusional state [Recovered/Resolved]
  - Blood albumin decreased [Recovered/Resolved]
  - Blood sodium increased [Recovered/Resolved]
  - Blood bicarbonate decreased [Recovered/Resolved]
  - Anion gap increased [Recovered/Resolved]
  - Pyroglutamate increased [Recovered/Resolved]
  - Blood chloride increased [Recovered/Resolved]
  - Tachypnoea [Recovered/Resolved]
